FAERS Safety Report 9232273 (Version 4)
Quarter: 2014Q3

REPORT INFORMATION
  Report Type: Spontaneous
  Country: US (occurrence: US)
  Receive Date: 20130415
  Receipt Date: 20140919
  Transmission Date: 20150326
  Serious: No
  Sender: FDA-Public Use
  Company Number: US-009507513-1304USA006799

PATIENT
  Sex: Male
  Weight: 104.76 kg

DRUGS (2)
  1. PROSCAR [Suspect]
     Active Substance: FINASTERIDE
     Indication: ANDROGENETIC ALOPECIA
     Dosage: 5 MG, UNK
     Route: 048
     Dates: start: 199707, end: 20031216
  2. PROPECIA [Suspect]
     Active Substance: FINASTERIDE
     Indication: ANDROGENETIC ALOPECIA
     Dosage: 1 MG, UNK
     Route: 048

REACTIONS (8)
  - Essential hypertension [Unknown]
  - Restless legs syndrome [Unknown]
  - Insomnia [Unknown]
  - Blood testosterone decreased [Unknown]
  - Drug administration error [Unknown]
  - Organic erectile dysfunction [Not Recovered/Not Resolved]
  - Anxiety [Unknown]
  - Hypogonadism male [Unknown]

NARRATIVE: CASE EVENT DATE: 199707
